FAERS Safety Report 6069091-9 (Version None)
Quarter: 2009Q1

REPORT INFORMATION
  Report Type: 
  Country: None (occurrence: None)
  Receive Date: 20090206
  Receipt Date: 20090123
  Transmission Date: 20090719
  Serious: Yes (Hospitalization)
  Sender: FDA-Public Use
  Company Number: FR-ELI_LILLY_AND_COMPANY-FR200808001597

PATIENT
  Age: 65 Year
  Sex: Female

DRUGS (2)
  1. FORTEO [Suspect]
     Indication: OSTEOPOROSIS
     Dosage: 20 UG, DAILY (1/D)
     Route: 058
     Dates: start: 20080218
  2. STEROID ANTIBACTERIALS [Concomitant]
     Indication: TEMPORAL ARTERITIS
     Dosage: UNK, HIGH DOSAGE
     Route: 065

REACTIONS (1)
  - OSTEONECROSIS [None]
